FAERS Safety Report 5935476-1 (Version None)
Quarter: 2008Q4

REPORT INFORMATION
  Report Type: 
  Country: None (occurrence: None)
  Receive Date: 20081028
  Receipt Date: 20081015
  Transmission Date: 20090506
  Serious: Yes (Hospitalization, Other)
  Sender: FDA-Public Use
  Company Number: GXKR2008US09934

PATIENT
  Age: 57 Year
  Sex: Male

DRUGS (2)
  1. RIBAVIRIN [Suspect]
     Indication: HEPATITIS C
     Dosage: 600 MG,BID,ORAL
     Route: 048
     Dates: start: 20061201
  2. PEGINTERFERON ALFA-2B (PEGINTERFERON ALFA-2B) [Suspect]
     Indication: HEPATITIS C
     Dosage: 150 UG,QW,SUBCUTANEOUS
     Route: 058
     Dates: start: 20061201

REACTIONS (11)
  - AUTONOMIC NERVOUS SYSTEM IMBALANCE [None]
  - DEAFNESS NEUROSENSORY [None]
  - DIARRHOEA [None]
  - HAEMOLYTIC ANAEMIA [None]
  - HYPERTENSION [None]
  - HYPOKALAEMIA [None]
  - NAUSEA [None]
  - ORTHOSTATIC HYPOTENSION [None]
  - PRESYNCOPE [None]
  - VESTIBULAR DISORDER [None]
  - VOMITING [None]
